FAERS Safety Report 8365912-5 (Version None)
Quarter: 2012Q2

REPORT INFORMATION
  Report Type: 
  Country: None (occurrence: None)
  Receive Date: 20120515
  Receipt Date: 20120515
  Transmission Date: 20120825
  Serious: Yes (Hospitalization)
  Sender: FDA-Public Use
  Company Number: None

PATIENT
  Age: 87 Year
  Sex: Male
  Weight: 96.4 kg

DRUGS (2)
  1. LOSARTAN POTASSIUM [Suspect]
     Indication: HYPERTENSION
     Dosage: 50 MG DAILY PO
     Route: 048
     Dates: start: 20120227, end: 20120315
  2. LOSARTAN POTASSIUM [Suspect]
     Indication: TYPE 2 DIABETES MELLITUS
     Dosage: 50 MG DAILY PO
     Route: 048
     Dates: start: 20120227, end: 20120315

REACTIONS (3)
  - PETECHIAE [None]
  - ECONOMIC PROBLEM [None]
  - THROMBOCYTOPENIA [None]
